FAERS Safety Report 5720719-X (Version None)
Quarter: 2008Q2

REPORT INFORMATION
  Report Type: 
  Country: None (occurrence: None)
  Receive Date: 20080424
  Receipt Date: 20080414
  Transmission Date: 20081010
  Serious: Yes (Life-Threatening)
  Sender: FDA-Public Use
  Company Number: 1-16022028

PATIENT
  Age: 14 Year
  Sex: Female

DRUGS (3)
  1. FLUCONAZOLE [Suspect]
     Indication: SYSTEMIC CANDIDA
     Dosage: 50 MG 3MG/KG/DAY
  2. ATRA [Suspect]
     Indication: LEUKAEMIA
     Dosage: 45 MG/M^2/DAY
  3. MEROPENEM [Concomitant]

REACTIONS (6)
  - DRUG INTERACTION [None]
  - DRUG LEVEL INCREASED [None]
  - HAEMODIALYSIS [None]
  - NEPHROPATHY TOXIC [None]
  - PERITONEAL DIALYSIS [None]
  - RENAL FAILURE ACUTE [None]
